FAERS Safety Report 5292466-2 (Version None)
Quarter: 2007Q2

REPORT INFORMATION
  Report Type: 
  Country: None (occurrence: None)
  Receive Date: 20070403
  Receipt Date: 20070319
  Transmission Date: 20071010
  Serious: Yes (Death, Other)
  Sender: FDA-Public Use
  Company Number: T200700276

PATIENT
  Age: 80 Year
  Sex: Male
  Weight: 45 kg

DRUGS (5)
  1. OPTIRAY 350 [Suspect]
     Indication: ANGIOGRAM PERIPHERAL
     Dosage: 230 ML, SINGLE, INTRA-ARTERIAL
     Route: 013
     Dates: start: 20070227, end: 20070227
  2. OPTIRAY 350 [Suspect]
     Indication: ARTERIOGRAM CORONARY
     Dosage: 230 ML, SINGLE, INTRA-ARTERIAL
     Route: 013
     Dates: start: 20070227, end: 20070227
  3. HEPARIN [Concomitant]
  4. ASPIRIN [Concomitant]
  5. CILOSTAZOL (CILOSTAZOL) TABLET [Concomitant]

REACTIONS (7)
  - BLOOD PRESSURE DIASTOLIC DECREASED [None]
  - CARDIO-RESPIRATORY ARREST [None]
  - COMA [None]
  - CONTRAST MEDIA REACTION [None]
  - CONVULSION [None]
  - PROCEDURAL COMPLICATION [None]
  - SHOCK [None]
